FAERS Safety Report 8210065-7 (Version None)
Quarter: 2012Q1

REPORT INFORMATION
  Report Type: 
  Country: None (occurrence: None)
  Receive Date: 20120314
  Receipt Date: 20110519
  Transmission Date: 20120608
  Serious: No
  Sender: FDA-Public Use
  Company Number: US-ASTRAZENECA-2011SE30751

PATIENT
  Age: 41 Year
  Sex: Female

DRUGS (2)
  1. TOPROL-XL [Suspect]
     Indication: POSTURAL ORTHOSTATIC TACHYCARDIA SYNDROME
     Route: 048
  2. ROGAINE [Concomitant]

REACTIONS (5)
  - HEADACHE [None]
  - DIZZINESS [None]
  - WRONG TECHNIQUE IN DRUG USAGE PROCESS [None]
  - LACRIMATION INCREASED [None]
  - VISION BLURRED [None]
